FAERS Safety Report 11544962 (Version 1)
Quarter: 2015Q3

REPORT INFORMATION
  Report Type: Spontaneous
  Country: US (occurrence: None)
  Receive Date: 20150923
  Receipt Date: 20150923
  Transmission Date: 20151125
  Serious: No
  Sender: FDA-Public Use
  Company Number: None

PATIENT
  Age: 46 Year
  Sex: Female

DRUGS (7)
  1. AMITRIPTYLIN [Concomitant]
     Active Substance: AMITRIPTYLINE
  2. LISINOPRIL. [Concomitant]
     Active Substance: LISINOPRIL
  3. PRAVASTATIN [Concomitant]
     Active Substance: PRAVASTATIN\PRAVASTATIN SODIUM
  4. METOPROLOL [Concomitant]
     Active Substance: METOPROLOL
  5. ZOLPIDEM [Concomitant]
     Active Substance: ZOLPIDEM\ZOLPIDEM TARTRATE
  6. IBRANCE [Suspect]
     Active Substance: PALBOCICLIB
     Indication: BREAST CANCER
     Route: 048
     Dates: start: 20150825
  7. FASLODEX [Concomitant]
     Active Substance: FULVESTRANT

REACTIONS (3)
  - Infection [None]
  - Neuropathy peripheral [None]
  - Pain [None]

NARRATIVE: CASE EVENT DATE: 201509
